FAERS Safety Report 4766790-3 (Version None)
Quarter: 2005Q3

REPORT INFORMATION
  Report Type: 
  Country: None (occurrence: None)
  Receive Date: 20050912
  Receipt Date: 20050902
  Transmission Date: 20060218
  Serious: Yes (Hospitalization)
  Sender: FDA-Public Use
  Company Number: CA-MERCK-0509CAN00034

PATIENT
  Age: 47 Year
  Sex: Male

DRUGS (7)
  1. VIOXX [Suspect]
     Indication: INJURY
     Route: 048
  2. OXYCODONE HYDROCHLORIDE [Concomitant]
     Route: 065
  3. LEVOTHYROXINE SODIUM [Concomitant]
     Route: 065
  4. ACETAMINOPHEN [Concomitant]
     Route: 065
  5. ASPIRIN [Concomitant]
     Route: 065
  6. TRYPTOPHAN [Concomitant]
     Route: 065
  7. OMEPRAZOLE SODIUM [Concomitant]
     Route: 065

REACTIONS (6)
  - FLUID RETENTION [None]
  - INFLAMMATION [None]
  - LIVER DISORDER [None]
  - MYOCARDIAL INFARCTION [None]
  - OEDEMA PERIPHERAL [None]
  - RENAL DISORDER [None]
